FAERS Safety Report 4375880-9 (Version None)
Quarter: 2004Q2

REPORT INFORMATION
  Report Type: 
  Country: None (occurrence: None)
  Receive Date: 20040607
  Receipt Date: 20040525
  Transmission Date: 20050107
  Serious: Yes (Hospitalization)
  Sender: FDA-Public Use
  Company Number: AU-JNJFOC-20040501720

PATIENT
  Age: 31 Year
  Sex: Male

DRUGS (1)
  1. REMICADE [Suspect]
     Indication: RHEUMATOID ARTHRITIS
     Dosage: DOSE 5MG/KG
     Dates: start: 20040329

REACTIONS (4)
  - ABASIA [None]
  - POLYARTHRITIS [None]
  - SYNOVITIS [None]
  - TYPE IV HYPERSENSITIVITY REACTION [None]
